FAERS Safety Report 22618050 (Version 2)
Quarter: 2024Q3

REPORT INFORMATION
  Report Type: Spontaneous
  Country: US (occurrence: US)
  Receive Date: 20230620
  Receipt Date: 20240711
  Transmission Date: 20241017
  Serious: No
  Sender: PIERRE FABRE MEDICAMENT
  Company Number: US-PFM-2022-07255

PATIENT
  Sex: Female
  Weight: 9 kg

DRUGS (2)
  1. HEMANGEOL [Suspect]
     Active Substance: PROPRANOLOL HYDROCHLORIDE
     Indication: Haemangioma
     Dosage: 2.7 ML, BID (2/DAY)
     Route: 048
  2. HEMANGEOL [Suspect]
     Active Substance: PROPRANOLOL HYDROCHLORIDE
     Dosage: 3.6 ML, BID (2/DAY)
     Route: 048

REACTIONS (5)
  - Teething [Unknown]
  - Pyrexia [Unknown]
  - Irritability [Unknown]
  - Agitation [Unknown]
  - Vomiting [Unknown]
